FAERS Safety Report 5939705-X (Version None)
Quarter: 2008Q4

REPORT INFORMATION
  Report Type: 
  Country: None (occurrence: None)
  Receive Date: 20081030
  Receipt Date: 20081030
  Transmission Date: 20090506
  Serious: Yes (Death)
  Sender: FDA-Public Use
  Company Number: None

PATIENT
  Age: 74 Year
  Sex: Male
  Weight: 81.6475 kg

DRUGS (2)
  1. KETOCONAZOLE [Suspect]
  2. LOVASTATIN [Concomitant]

REACTIONS (5)
  - DIALYSIS [None]
  - DRUG INTERACTION [None]
  - RENAL FAILURE [None]
  - RHABDOMYOLYSIS [None]
  - WEIGHT DECREASED [None]
